FAERS Safety Report 10205108 (Version 1)
Quarter: 2014Q2

REPORT INFORMATION
  Report Type: Spontaneous
  Country: GB (occurrence: GB)
  Receive Date: 20140529
  Receipt Date: 20140529
  Transmission Date: 20141212
  Serious: Yes (Other)
  Sender: FDA-Public Use
  Company Number: GB-ACTAVIS-2014-10955

PATIENT
  Age: 44 Year
  Sex: Female
  Weight: 64 kg

DRUGS (4)
  1. CO-CODAMOL [Suspect]
     Indication: PAIN
     Dosage: 2 DF FOUR TIMES A DAY, 30/500
     Route: 048
     Dates: start: 20140430
  2. DICLOFENAC [Concomitant]
     Indication: PRODUCT USED FOR UNKNOWN INDICATION
     Dosage: UNK
     Route: 065
  3. IBUPROFEN [Concomitant]
     Indication: PRODUCT USED FOR UNKNOWN INDICATION
     Dosage: UNK
     Route: 065
  4. INSULIN HUMAN [Concomitant]
     Indication: PRODUCT USED FOR UNKNOWN INDICATION
     Dosage: UNK
     Route: 065

REACTIONS (3)
  - Somnolence [Recovered/Resolved]
  - Bradycardia [Recovered/Resolved]
  - Palpitations [Recovered/Resolved]
